FAERS Safety Report 12239929 (Version 1)
Quarter: 2016Q2

REPORT INFORMATION
  Report Type: Spontaneous
  Country: US (occurrence: US)
  Receive Date: 20160405
  Receipt Date: 20160405
  Transmission Date: 20160815
  Serious: No
  Sender: FDA-Public Use
  Company Number: US-ROCHE-1645815

PATIENT
  Sex: Female

DRUGS (8)
  1. NIACINAMIDE [Concomitant]
     Active Substance: NIACINAMIDE
  2. HCTZ/TRIAMTERENE [Concomitant]
  3. ACITRETIN. [Concomitant]
     Active Substance: ACITRETIN
     Route: 065
  4. IMIQUIMOD. [Concomitant]
     Active Substance: IMIQUIMOD
  5. ERIVEDGE [Suspect]
     Active Substance: VISMODEGIB
     Indication: BASAL CELL CARCINOMA
     Dosage: ONE A DAY
     Route: 065
     Dates: start: 2013
  6. PICATO [Concomitant]
     Active Substance: INGENOL MEBUTATE
  7. EFUDEX [Concomitant]
     Active Substance: FLUOROURACIL
  8. CULTURELLE [Concomitant]
     Active Substance: LACTOBACILLUS RHAMNOSUS

REACTIONS (1)
  - Basal cell carcinoma [Unknown]
